FAERS Safety Report 5453088-3 (Version None)
Quarter: 2007Q3

REPORT INFORMATION
  Report Type: 
  Country: None (occurrence: None)
  Receive Date: 20070914
  Receipt Date: 20070905
  Transmission Date: 20080115
  Serious: Yes (Other)
  Sender: FDA-Public Use
  Company Number: CA-PFIZER INC-2007060249

PATIENT
  Age: 40 Year
  Sex: Male
  Weight: 81 kg

DRUGS (12)
  1. TIKOSYN [Suspect]
     Indication: VENTRICULAR TACHYCARDIA
  2. AMIODARONE HCL [Suspect]
     Indication: VENTRICULAR TACHYCARDIA
     Route: 048
  3. MONOCOR [Concomitant]
     Indication: VENTRICULAR DYSFUNCTION
  4. CELLCEPT [Concomitant]
  5. CRESTOR [Concomitant]
     Indication: BLOOD CHOLESTEROL ABNORMAL
     Dosage: DAILY DOSE:10MG-FREQ:DAILY
  6. ZESTRIL [Concomitant]
     Indication: VENTRICULAR DYSFUNCTION
     Dosage: DAILY DOSE:10MG-FREQ:DAILY
  7. LASIX [Concomitant]
  8. LOSEC I.V. [Concomitant]
     Dosage: DAILY DOSE:20MG-FREQ:DAILY
  9. COUMADIN [Concomitant]
  10. ATIVAN [Concomitant]
  11. SERAX [Concomitant]
  12. CELEXA [Concomitant]
     Dosage: DAILY DOSE:20MG-FREQ:DAILY

REACTIONS (6)
  - ALANINE AMINOTRANSFERASE INCREASED [None]
  - ASPARTATE AMINOTRANSFERASE INCREASED [None]
  - BLOOD BILIRUBIN INCREASED [None]
  - BLOOD LACTATE DEHYDROGENASE INCREASED [None]
  - BLOOD PRESSURE DECREASED [None]
  - HEPATIC ENZYME INCREASED [None]
